FAERS Safety Report 5188706-0 (Version None)
Quarter: 2006Q4

REPORT INFORMATION
  Report Type: 
  Country: None (occurrence: None)
  Receive Date: 20061221
  Receipt Date: 20061214
  Transmission Date: 20070319
  Serious: Yes (Hospitalization)
  Sender: FDA-Public Use
  Company Number: US-BRISTOL-MYERS SQUIBB COMPANY-13613153

PATIENT
  Age: 59 Year
  Sex: Female
  Weight: 64 kg

DRUGS (6)
  1. COUMADIN [Suspect]
     Indication: ANTICOAGULANT THERAPY
     Route: 048
  2. BONIVA [Suspect]
     Indication: OSTEOPOROSIS
     Route: 048
     Dates: start: 20061006, end: 20061006
  3. SINGULAIR [Concomitant]
  4. DITROPAN [Concomitant]
  5. TOPAMAX [Concomitant]
  6. POTASSIUM ACETATE [Concomitant]

REACTIONS (5)
  - CHEST PAIN [None]
  - DYSPHAGIA [None]
  - INTERNATIONAL NORMALISED RATIO INCREASED [None]
  - OESOPHAGITIS ULCERATIVE [None]
  - PAIN IN EXTREMITY [None]
